FAERS Safety Report 8024655-8 (Version None)
Quarter: 2012Q1

REPORT INFORMATION
  Report Type: 
  Country: None (occurrence: None)
  Receive Date: 20120105
  Receipt Date: 20120103
  Transmission Date: 20120608
  Serious: Yes (Hospitalization, Disabling, Other)
  Sender: FDA-Public Use
  Company Number: US-AMGEN-USASP2011061604

PATIENT
  Age: 66 Year
  Sex: Female

DRUGS (1)
  1. ENBREL [Suspect]
     Indication: RHEUMATOID ARTHRITIS
     Dosage: 50 MG, QWK
     Dates: start: 20060201

REACTIONS (20)
  - PAIN [None]
  - HYPERHIDROSIS [None]
  - LEG AMPUTATION [None]
  - EAR PAIN [None]
  - DECREASED ACTIVITY [None]
  - PAIN IN EXTREMITY [None]
  - SKIN ULCER [None]
  - NAUSEA [None]
  - VOMITING [None]
  - IMPAIRED HEALING [None]
  - ABSCESS LIMB [None]
  - BLOOD GLUCOSE INCREASED [None]
  - NEUROPATHIC ARTHROPATHY [None]
  - CEREBROVASCULAR ACCIDENT [None]
  - ALTERED STATE OF CONSCIOUSNESS [None]
  - MUSCULOSKELETAL PAIN [None]
  - INJECTION SITE PAIN [None]
  - LOSS OF CONSCIOUSNESS [None]
  - STAPHYLOCOCCAL INFECTION [None]
  - INJECTION SITE DISCOLOURATION [None]
